FAERS Safety Report 9199878 (Version 1)
Quarter: 2013Q1

REPORT INFORMATION
  Report Type: Spontaneous
  Country: US (occurrence: US)
  Receive Date: 20130329
  Receipt Date: 20130329
  Transmission Date: 20140127
  Serious: Yes (Other)
  Sender: FDA-Public Use
  Company Number: US-ELI_LILLY_AND_COMPANY-US201303007161

PATIENT
  Age: 56 Year
  Sex: Male

DRUGS (5)
  1. BYDUREON [Suspect]
     Indication: TYPE 2 DIABETES MELLITUS
     Dosage: 2 MG, WEEKLY (1/W)
     Route: 058
     Dates: start: 201303
  2. BENICAR [Concomitant]
     Route: 048
  3. ACTOS                                   /USA/ [Concomitant]
     Route: 048
  4. FISH OIL [Concomitant]
     Route: 048
  5. BABY ASPIRIN [Concomitant]
     Route: 048

REACTIONS (4)
  - Pancreatic carcinoma [Unknown]
  - Pancreatitis [Unknown]
  - Cholelithiasis [Unknown]
  - Metastases to liver [Unknown]
